FAERS Safety Report 7029322 (Version 8)
Quarter: 2012Q4

REPORT INFORMATION
  Report Type: Report from Study
  Country: DE (occurrence: DE)
  Receive Date: 20090622
  Receipt Date: 20121031
  Transmission Date: 20130627
  Serious: Yes (Hospitalization, Other)
  Sender: FDA-Public Use
  Company Number: DE-BIOGENIDEC-2009BI018360

PATIENT
  Age: 35 Year
  Sex: Female
  Weight: 72 kg

DRUGS (5)
  1. NATALIZUMAB [Suspect]
     Indication: MULTIPLE SCLEROSIS
     Route: 042
     Dates: start: 200610, end: 200904
  2. CITALOPRAM [Concomitant]
     Route: 048
  3. LEVOTHYROXIN [Concomitant]
     Route: 048
     Dates: start: 2008
  4. METRONIDAZOLE VAGINAL [Concomitant]
     Indication: VAGINITIS BACTERIAL
     Route: 067
     Dates: start: 200907, end: 20090708
  5. COPAXONE [Concomitant]
     Dates: start: 201009

REACTIONS (2)
  - Progressive multifocal leukoencephalopathy [Recovered/Resolved]
  - Immune reconstitution inflammatory syndrome [Unknown]
